FAERS Safety Report 4864795-5 (Version None)
Quarter: 2005Q4

REPORT INFORMATION
  Report Type: 
  Country: None (occurrence: None)
  Receive Date: 20051222
  Receipt Date: 20051005
  Transmission Date: 20060501
  Serious: Yes (Death, Hospitalization, Other)
  Sender: FDA-Public Use
  Company Number: US-MERCK-0510USA05380

PATIENT
  Age: 83 Year
  Sex: Female

DRUGS (5)
  1. VIOXX [Suspect]
     Indication: PAIN
     Route: 048
     Dates: end: 20020310
  2. COZAAR [Concomitant]
     Route: 065
  3. LANOXIN [Concomitant]
     Route: 065
  4. ASPIRIN [Concomitant]
     Route: 065
  5. ACETAMINOPHEN [Concomitant]
     Route: 065

REACTIONS (25)
  - ACIDOSIS [None]
  - ANAEMIA [None]
  - BRADYCARDIA [None]
  - CEREBROVASCULAR ACCIDENT [None]
  - CHOLELITHIASIS [None]
  - CLOSTRIDIUM COLITIS [None]
  - COMA [None]
  - DEATH [None]
  - DEEP VEIN THROMBOSIS [None]
  - DEHYDRATION [None]
  - DIVERTICULUM INTESTINAL [None]
  - DUODENAL ULCER [None]
  - ENTEROCOCCAL INFECTION [None]
  - GASTRITIS [None]
  - GASTROINTESTINAL HAEMORRHAGE [None]
  - HYPERKALAEMIA [None]
  - INFECTION [None]
  - LUNG CONSOLIDATION [None]
  - PLEURAL EFFUSION [None]
  - PNEUMONIA STAPHYLOCOCCAL [None]
  - RENAL FAILURE [None]
  - SEPSIS [None]
  - SUPRAVENTRICULAR TACHYCARDIA [None]
  - URINARY TRACT INFECTION [None]
  - VENOUS OCCLUSION [None]
